FAERS Safety Report 10273267 (Version 1)
Quarter: 2014Q1

REPORT INFORMATION
  Report Type: Spontaneous
  Country: US (occurrence: None)
  Receive Date: 20140306
  Receipt Date: 20140306
  Transmission Date: 20141002
  Serious: Yes (Hospitalization)
  Sender: FDA-Public Use
  Company Number: 163-21880-13083701

PATIENT
  Age: 60 Year
  Sex: Male
  Weight: 102.1 kg

DRUGS (8)
  1. REVLIMID (LENALIDOMIDE) (25 MILLIGRAM, CAPSULES) [Suspect]
     Indication: PLASMA CELL MYELOMA
     Dosage: 25 MG, 21 IN 28 D, PO
     Route: 048
     Dates: start: 201303
  2. DEXAMETHASONE [Concomitant]
  3. ASPRIN [Concomitant]
  4. GABAPENTIN [Concomitant]
  5. ACYCLOVIR [Concomitant]
  6. HYDROCORTISONE [Concomitant]
  7. DOXYCYCLINE HYCLATE [Concomitant]
  8. LEVOTHYROXINE [Concomitant]

REACTIONS (2)
  - Thrombosis [None]
  - Pulmonary thrombosis [None]
